FAERS Safety Report 6163421-5 (Version None)
Quarter: 2009Q2

REPORT INFORMATION
  Report Type: 
  Country: None (occurrence: None)
  Receive Date: 20090422
  Receipt Date: 20090420
  Transmission Date: 20091009
  Serious: Yes (Other)
  Sender: FDA-Public Use
  Company Number: US-BAYER-200911233BCC

PATIENT
  Age: 22 Year
  Sex: Male
  Weight: 68 kg

DRUGS (9)
  1. ASPIRIN [Suspect]
     Indication: ANALGESIA
     Dates: start: 19500101
  2. HYDROCHLOROTHIAZIDE [Concomitant]
  3. DILANTIN [Concomitant]
  4. SIMVASTATIN [Concomitant]
  5. TRIAMTERENE [Concomitant]
  6. BETAXOLOL [Concomitant]
  7. SENNALAX [Concomitant]
  8. VITAMIN B-12 [Concomitant]
  9. DIAZEPAM [Concomitant]

REACTIONS (1)
  - GASTRIC HAEMORRHAGE [None]
